FAERS Safety Report 5476271-X (Version None)
Quarter: 2007Q4

REPORT INFORMATION
  Report Type: 
  Country: None (occurrence: None)
  Receive Date: 20071003
  Receipt Date: 20071001
  Transmission Date: 20080405
  Serious: Yes (Hospitalization)
  Sender: FDA-Public Use
  Company Number: FR-WYE-G00397507

PATIENT
  Sex: Female

DRUGS (5)
  1. EFFEXOR XR [Suspect]
     Indication: DEPRESSION
     Dosage: UNKNOWN
     Route: 048
  2. RIVOTRIL [Suspect]
     Indication: NEURALGIA
     Dosage: UNKNOWN
     Route: 048
  3. ATARAX [Suspect]
     Indication: ANXIETY
     Dosage: UNKNOWN
     Route: 048
  4. LEXOMIL [Suspect]
     Indication: ANXIETY
     Dosage: UNKNOWN
     Route: 048
  5. OXYCONTIN [Suspect]
     Indication: PAIN
     Dosage: UNKNOWN
     Route: 048

REACTIONS (1)
  - DRUG DEPENDENCE [None]
